FAERS Safety Report 7576380-5 (Version None)
Quarter: 2011Q2

REPORT INFORMATION
  Report Type: 
  Country: None (occurrence: None)
  Receive Date: 20110628
  Receipt Date: 20110608
  Transmission Date: 20111010
  Serious: Yes (Hospitalization, Disabling, Other)
  Sender: FDA-Public Use
  Company Number: US-BAYER-200942494NA

PATIENT
  Age: 30 Year
  Sex: Female
  Weight: 76 kg

DRUGS (22)
  1. TOPAMAX [Concomitant]
     Indication: MIGRAINE
     Dates: start: 19980101
  2. MULTI-VITAMIN [Concomitant]
     Dosage: INTERMITTENTLY ON A DAILY BASIS
  3. ACIPHEX [Concomitant]
  4. ZOCOR [Concomitant]
  5. ACETAMINOPHEN [Concomitant]
     Indication: PYREXIA
  6. CLONAZEPAM [Concomitant]
  7. PROMETHAZINE [Concomitant]
     Dosage: 200 MG, UNK
  8. PROPRANOLOL [Concomitant]
     Dosage: 20 MG, UNK
  9. NAPROXEN (ALEVE) [Concomitant]
  10. ACETAMINOPHEN [Concomitant]
  11. TOPAMAX [Concomitant]
     Dosage: 25 MG, UNK
  12. NITROFURANTOIN [Concomitant]
  13. TAMIFLU [Concomitant]
  14. PLAVIX [Concomitant]
  15. HYDROCODONE BITARTRATE AND ACETAMINOPHEN [Concomitant]
  16. PROPOXYPHENE NAPSYLATE W/PARACETAMOL [Concomitant]
  17. ERYTHROMYCIN [Concomitant]
     Dosage: 5 MG, UNK
  18. SULFAMETHOXAZOLE AND TRIMETHOPRIM [Concomitant]
  19. YAZ [Suspect]
     Indication: PRODUCT USED FOR UNKNOWN INDICATION
     Dates: start: 20060601, end: 20080107
  20. PROTONIX [Concomitant]
  21. PENICILLIN VK [Concomitant]
     Dosage: 500 MG, UNK
  22. HYDROXYZINE HCL [Concomitant]
     Dosage: 25 MG, UNK

REACTIONS (17)
  - PARESIS [None]
  - NAUSEA [None]
  - CEREBROVASCULAR ACCIDENT [None]
  - BLINDNESS [None]
  - GAIT DISTURBANCE [None]
  - CRANIAL NERVE PARALYSIS [None]
  - ASTHENIA [None]
  - DIZZINESS [None]
  - BALANCE DISORDER [None]
  - HEADACHE [None]
  - MIGRAINE [None]
  - VOMITING [None]
  - NIGHT BLINDNESS [None]
  - ABDOMINAL PAIN UPPER [None]
  - GASTROENTERITIS VIRAL [None]
  - DIPLOPIA [None]
  - TRANSIENT ISCHAEMIC ATTACK [None]
